FAERS Safety Report 21144999 (Version 1)
Quarter: 2022Q3

REPORT INFORMATION
  Report Type: Spontaneous
  Country: None (occurrence: FR)
  Receive Date: 20220728
  Receipt Date: 20220728
  Transmission Date: 20221027
  Serious: Yes (Hospitalization, Other)
  Sender: FDA-Public Use
  Company Number: FR-B.Braun Medical Inc.-2131354

PATIENT
  Age: 55 Year
  Sex: Male

DRUGS (25)
  1. HEPARIN SODIUM [Suspect]
     Active Substance: HEPARIN SODIUM
     Indication: Anticoagulant therapy
     Route: 058
     Dates: start: 20210326
  2. PROPOFOL [Suspect]
     Active Substance: PROPOFOL
  3. MIDAZOLAM [Suspect]
     Active Substance: MIDAZOLAM
  4. CIPROFLOXACIN [Suspect]
     Active Substance: CIPROFLOXACIN
  5. AMIKACIN SULFATE [Suspect]
     Active Substance: AMIKACIN SULFATE
  6. FUROSEMIDE [Suspect]
     Active Substance: FUROSEMIDE
  7. COLISTIMETHATE SODIUM [Suspect]
     Active Substance: COLISTIMETHATE SODIUM
  8. HYDROCHLOROTHIAZIDE [Suspect]
     Active Substance: HYDROCHLOROTHIAZIDE
  9. SUFENTANIL CITRATE [Suspect]
     Active Substance: SUFENTANIL CITRATE
  10. URAPIDIL [Suspect]
     Active Substance: URAPIDIL
  11. MEROPENEM [Suspect]
     Active Substance: MEROPENEM
  12. LANSOPRAZOLE [Suspect]
     Active Substance: LANSOPRAZOLE
  13. BUMETANIDE [Suspect]
     Active Substance: BUMETANIDE
  14. PIPERACILLIN AND TAZOBACTAM [Suspect]
     Active Substance: PIPERACILLIN SODIUM\TAZOBACTAM SODIUM
  15. IMIPENEM [Suspect]
     Active Substance: IMIPENEM
  16. ACYCLOVIR [Suspect]
     Active Substance: ACYCLOVIR
  17. ATRACURIUM BESYLATE [Suspect]
     Active Substance: ATRACURIUM BESYLATE
  18. CAYSTON [Suspect]
     Active Substance: AZTREONAM
  19. AZTREONAM [Suspect]
     Active Substance: AZTREONAM
  20. INSULIN NOS [Suspect]
     Active Substance: INSULIN NOS
  21. METRONIDAZOLE [Suspect]
     Active Substance: METRONIDAZOLE
  22. AMLODIPINE BESYLATE [Concomitant]
     Active Substance: AMLODIPINE BESYLATE
  23. Movicol (MACROGOL 3350;POTASSIUM CHLORIDE;SODIUM?BICARBONATE;SODIUM CH [Concomitant]
  24. METFORMIN [Concomitant]
     Active Substance: METFORMIN HYDROCHLORIDE
  25. HERBALS\KARAYA GUM [Concomitant]
     Active Substance: HERBALS\KARAYA GUM

REACTIONS (6)
  - Leukocytosis [Recovered/Resolved]
  - Hepatic cytolysis [Recovered/Resolved]
  - Eosinophilia [Recovered/Resolved]
  - Thrombocytopenia [Recovered/Resolved]
  - Rash maculo-papular [None]
  - Condition aggravated [Recovered/Resolved]

NARRATIVE: CASE EVENT DATE: 20210401
